FAERS Safety Report 7405726-3 (Version None)
Quarter: 2011Q2

REPORT INFORMATION
  Report Type: 
  Country: None (occurrence: None)
  Receive Date: 20110406
  Receipt Date: 20110406
  Transmission Date: 20111010
  Serious: Yes (Hospitalization)
  Sender: FDA-Public Use
  Company Number: None

PATIENT
  Age: 86 Year
  Sex: Female
  Weight: 58.9676 kg

DRUGS (1)
  1. TC99 TETRAFORMIN HEART [Suspect]

REACTIONS (13)
  - FEELING ABNORMAL [None]
  - ANGER [None]
  - VISUAL IMPAIRMENT [None]
  - DIZZINESS [None]
  - ALOPECIA [None]
  - THROMBOSIS [None]
  - SLEEP DISORDER [None]
  - PANIC ATTACK [None]
  - DYSGRAPHIA [None]
  - CEREBROVASCULAR ACCIDENT [None]
  - VERTIGO [None]
  - HAIR COLOUR CHANGES [None]
  - EPHELIDES [None]
